FAERS Safety Report 9719352 (Version 1)
Quarter: 2013Q4

REPORT INFORMATION
  Report Type: Spontaneous
  Country: BE (occurrence: BE)
  Receive Date: 20131127
  Receipt Date: 20131127
  Transmission Date: 20140711
  Serious: Yes (Hospitalization)
  Sender: FDA-Public Use
  Company Number: PHHY2013BE135658

PATIENT
  Age: 15 Year
  Sex: Male

DRUGS (4)
  1. MINOCYCLINE [Suspect]
     Indication: ACNE
     Dosage: 100 MG, UNK
  2. ISOTRETINOIN [Suspect]
     Indication: ACNE
     Dosage: 20 MG, UNK
  3. ERYTHROMYCIN [Concomitant]
     Indication: ACNE
  4. ADAPALENE [Concomitant]
     Indication: ACNE

REACTIONS (2)
  - Rhabdomyolysis [Recovered/Resolved]
  - Myalgia [Recovered/Resolved]
